FAERS Safety Report 11307137 (Version 1)
Quarter: 2015Q3

REPORT INFORMATION
  Report Type: Spontaneous
  Country: US (occurrence: US)
  Receive Date: 20150723
  Receipt Date: 20150723
  Transmission Date: 20151125
  Serious: No
  Sender: FDA-Public Use
  Company Number: US-009507513-1507USA009584

PATIENT
  Age: 62 Year
  Sex: Female

DRUGS (3)
  1. BELSOMRA [Suspect]
     Active Substance: SUVOREXANT
     Indication: INSOMNIA
     Dosage: 10 MG, QD AT NIGHT
     Route: 048
     Dates: start: 20150717, end: 20150717
  2. BELSOMRA [Suspect]
     Active Substance: SUVOREXANT
     Dosage: 10 MG, BID AT NIGHT
     Route: 048
     Dates: start: 20150718, end: 20150718
  3. BELSOMRA [Suspect]
     Active Substance: SUVOREXANT
     Indication: INSOMNIA
     Dosage: 15 MG, BID AT NIGHT
     Route: 048
     Dates: start: 20150719, end: 20150719

REACTIONS (4)
  - Extra dose administered [Unknown]
  - Drug ineffective [Recovering/Resolving]
  - Overdose [Unknown]
  - Drug ineffective [Recovered/Resolved]

NARRATIVE: CASE EVENT DATE: 20150718
